FAERS Safety Report 8105840-3 (Version None)
Quarter: 2012Q1

REPORT INFORMATION
  Report Type: 
  Country: None (occurrence: None)
  Receive Date: 20120202
  Receipt Date: 20120125
  Transmission Date: 20120608
  Serious: Yes (Hospitalization)
  Sender: FDA-Public Use
  Company Number: US-BRISTOL-MYERS SQUIBB COMPANY-16368318

PATIENT
  Sex: Female

DRUGS (2)
  1. ABILIFY [Suspect]
     Indication: DEPRESSION
     Dosage: INITIALLY 2 MG
  2. ABILIFY [Suspect]
     Indication: MANIA
     Dosage: INITIALLY 2 MG

REACTIONS (1)
  - INTESTINAL OBSTRUCTION [None]
